FAERS Safety Report 16181164 (Version 4)
Quarter: 2020Q3

REPORT INFORMATION
  Report Type: Spontaneous
  Country: JP (occurrence: JP)
  Receive Date: 20190410
  Receipt Date: 20200915
  Transmission Date: 20201102
  Serious: Yes (Other)
  Sender: FDA-Public Use
  Company Number: PHJP2019JP004098

PATIENT
  Age: 68 Year
  Sex: Female

DRUGS (2)
  1. VOTRIENT [Suspect]
     Active Substance: PAZOPANIB HYDROCHLORIDE
     Dosage: 400 MG
     Route: 048
  2. VOTRIENT [Suspect]
     Active Substance: PAZOPANIB HYDROCHLORIDE
     Indication: UTERINE LEIOMYOSARCOMA
     Dosage: 600 MG
     Route: 048

REACTIONS (11)
  - Acute kidney injury [Unknown]
  - Myelosuppression [Unknown]
  - Liver disorder [Unknown]
  - Multiple organ dysfunction syndrome [Unknown]
  - Disseminated intravascular coagulation [Unknown]
  - Jaundice [Unknown]
  - Sepsis [Unknown]
  - Malaise [Unknown]
  - Inflammation [Unknown]
  - Infection [Unknown]
  - Taste disorder [Unknown]
